FAERS Safety Report 7206181-9 (Version None)
Quarter: 2010Q4

REPORT INFORMATION
  Report Type: 
  Country: None (occurrence: None)
  Receive Date: 20101229
  Receipt Date: 20101229
  Transmission Date: 20110411
  Serious: Yes (Other)
  Sender: FDA-Public Use
  Company Number: None

PATIENT
  Age: 63 Year
  Sex: Female
  Weight: 63.5036 kg

DRUGS (3)
  1. PANTOPRAZOLE SODIUM [Suspect]
     Indication: IMPAIRED GASTRIC EMPTYING
     Dosage: 40 MG ONCE A DAY BY MOUTH
     Route: 048
     Dates: start: 20091101, end: 20091201
  2. PANTOPRAZOLE SODIUM [Suspect]
     Indication: NEUROPATHY PERIPHERAL
     Dosage: 40 MG ONCE A DAY BY MOUTH
     Route: 048
     Dates: start: 20091101, end: 20091201
  3. PANTOPRAZOLE SODIUM [Suspect]
     Indication: VIRAL INFECTION
     Dosage: 40 MG ONCE A DAY BY MOUTH
     Route: 048
     Dates: start: 20091101, end: 20091201

REACTIONS (1)
  - PRODUCT SUBSTITUTION ISSUE [None]
